FAERS Safety Report 11131043 (Version 1)
Quarter: 2015Q2

REPORT INFORMATION
  Report Type: Spontaneous
  Country: US (occurrence: None)
  Receive Date: 20150521
  Receipt Date: 20150521
  Transmission Date: 20150821
  Serious: Yes (Other)
  Sender: FDA-Public Use
  Company Number: None

PATIENT
  Age: 59 Year
  Sex: Female

DRUGS (2)
  1. CELECOXIB 200MG [Suspect]
     Active Substance: CELECOXIB
     Indication: ARTHRITIS
     Route: 048
     Dates: start: 20150323, end: 20150330
  2. CELECOXIB 200MG [Suspect]
     Active Substance: CELECOXIB
     Indication: OSTEOPOROSIS
     Route: 048
     Dates: start: 20150323, end: 20150330

REACTIONS (4)
  - Product substitution issue [None]
  - Abdominal pain [None]
  - Oropharyngeal pain [None]
  - Dyspepsia [None]

NARRATIVE: CASE EVENT DATE: 20150323
